FAERS Safety Report 8840588 (Version 1)
Quarter: 2012Q4

REPORT INFORMATION
  Report Type: 
  Country: NL (occurrence: NL)
  Receive Date: 20121015
  Receipt Date: 20121015
  Transmission Date: 20130627
  Serious: Yes (Hospitalization)
  Sender: FDA-Public Use
  Company Number: NL-PFIZER INC-2012251728

PATIENT
  Age: 75 Year
  Sex: Male
  Weight: 83 kg

DRUGS (6)
  1. GENOTROPIN [Suspect]
     Indication: GROWTH HORMONE DEFICIENCY
     Dosage: 0.5 mg, 7/wk
     Route: 058
     Dates: start: 20020211
  2. MOCLOBEMIDE [Concomitant]
     Indication: ANTIDEPRESSANT THERAPY
     Dosage: UNK
     Dates: start: 20000915
  3. TESTOSTERONE [Concomitant]
     Indication: BLOOD LUTEINISING HORMONE DECREASED
     Dosage: UNK
     Dates: start: 19920525
  4. TESTOSTERONE [Concomitant]
     Indication: BLOOD FOLLICLE STIMULATING HORMONE DECREASED
  5. OXAZEPAM [Concomitant]
     Indication: GENERAL SYMPTOM
     Dosage: UNK
     Dates: start: 20020715
  6. CORTISONE ACETATE [Concomitant]
     Indication: BLOOD CORTICOTROPHIN DECREASED
     Dosage: UNK
     Dates: start: 19970227

REACTIONS (1)
  - Joint injury [Unknown]
